FAERS Safety Report 8828735 (Version 1)
Quarter: 2012Q4

REPORT INFORMATION
  Report Type: 
  Country: US (occurrence: US)
  Receive Date: 20121008
  Receipt Date: 20121008
  Transmission Date: 20130627
  Serious: Yes (Hospitalization)
  Sender: FDA-Public Use
  Company Number: US-ROCHE-1137112

PATIENT
  Age: 67 Year
  Sex: Male

DRUGS (10)
  1. RITUXAN [Suspect]
     Indication: CHRONIC LYMPHOCYTIC LEUKAEMIA
     Route: 065
     Dates: start: 20000810
  2. PREDNISONE [Concomitant]
  3. CHLORAMBUCIL [Concomitant]
  4. FLOVENT [Concomitant]
  5. ALBUTEROL [Concomitant]
  6. VERAPAMIL [Concomitant]
     Route: 065
  7. THEOPHYLLINE [Concomitant]
     Route: 065
  8. SINGULAIR [Concomitant]
  9. ASCRIPTIN (UNITED STATES) [Concomitant]
  10. ZANTAC [Concomitant]
     Route: 065

REACTIONS (14)
  - Chronic obstructive pulmonary disease [Unknown]
  - Dyspnoea [Unknown]
  - White blood cell count decreased [Unknown]
  - Pain [Unknown]
  - Diarrhoea [Unknown]
  - Decreased appetite [Unknown]
  - Constipation [Unknown]
  - Sinusitis [Not Recovered/Not Resolved]
  - Anxiety [Unknown]
  - Depression [Unknown]
  - Anaemia [Unknown]
  - Thrombocytopenia [Unknown]
  - Fatigue [Unknown]
  - Cough [Unknown]
